FAERS Safety Report 24079000 (Version 1)
Quarter: 2024Q3

REPORT INFORMATION
  Report Type: Spontaneous
  Country: US (occurrence: None)
  Receive Date: 20240710
  Receipt Date: 20240710
  Transmission Date: 20241016
  Serious: Yes (Death)
  Sender: Public
  Company Number: None

PATIENT
  Age: 24 Year
  Sex: Male

DRUGS (1)
  1. EPIDIOLEX [Suspect]
     Active Substance: CANNABIDIOL
     Indication: Lennox-Gastaut syndrome
     Dosage: FREQUENCY : TWICE A DAY;?
     Route: 048
     Dates: start: 20220301, end: 20240701

REACTIONS (1)
  - Death [None]

NARRATIVE: CASE EVENT DATE: 20240701
